FAERS Safety Report 13591810 (Version 1)
Quarter: 2017Q2

REPORT INFORMATION
  Report Type: Report from Study
  Country: US (occurrence: US)
  Receive Date: 20170529
  Receipt Date: 20170529
  Transmission Date: 20170830
  Serious: Yes (Other)
  Sender: FDA-Public Use
  Company Number: US-AMGEN-USASL2017079257

PATIENT
  Age: 62 Year
  Sex: Female

DRUGS (9)
  1. ENBREL [Suspect]
     Active Substance: ETANERCEPT
     Dosage: UNK UNK, QWK (1 INJECTION)
     Route: 065
     Dates: end: 20061118
  2. ENBREL [Suspect]
     Active Substance: ETANERCEPT
     Dosage: UNK UNK, EVERY FIVE DAYS
     Route: 065
     Dates: start: 200803, end: 20080601
  3. ENBREL [Suspect]
     Active Substance: ETANERCEPT
     Dosage: UNK UNK, QWK
     Route: 065
     Dates: start: 20140528
  4. ENBREL [Suspect]
     Active Substance: ETANERCEPT
     Indication: PSORIATIC ARTHROPATHY
     Dosage: UNK UNK, QWK (2 INJECTION)
     Route: 065
     Dates: start: 199901, end: 19990717
  5. ENBREL [Suspect]
     Active Substance: ETANERCEPT
     Dosage: UNK
     Route: 065
     Dates: start: 19990717, end: 20020312
  6. ENBREL [Suspect]
     Active Substance: ETANERCEPT
     Dosage: 25 MG, EVERY TEN DAYS
     Route: 065
     Dates: start: 2007, end: 20071111
  7. ENBREL [Suspect]
     Active Substance: ETANERCEPT
     Dosage: UNK UNK, 2 TIMES/WK
     Route: 065
     Dates: start: 20080601, end: 20140528
  8. ENBREL [Suspect]
     Active Substance: ETANERCEPT
     Dosage: UNK
     Route: 065
     Dates: start: 20061118, end: 2007
  9. ENBREL [Suspect]
     Active Substance: ETANERCEPT
     Dosage: UNK
     Route: 065
     Dates: start: 20071111, end: 200801

REACTIONS (14)
  - Cataract [Unknown]
  - Seasonal allergy [Unknown]
  - Drug dose omission [Unknown]
  - Neck pain [Unknown]
  - Musculoskeletal disorder [Unknown]
  - Pneumonia [Unknown]
  - Infection [Unknown]
  - Surgery [Unknown]
  - Mouth ulceration [Recovered/Resolved]
  - Fatigue [Unknown]
  - Intentional product misuse [Unknown]
  - Allergic sinusitis [Unknown]
  - Injection site rash [Unknown]
  - Injection site urticaria [Unknown]

NARRATIVE: CASE EVENT DATE: 199901
